FAERS Safety Report 5496256-7 (Version None)
Quarter: 2007Q4

REPORT INFORMATION
  Report Type: 
  Country: None (occurrence: None)
  Receive Date: 20071025
  Receipt Date: 20070319
  Transmission Date: 20080405
  Serious: No
  Sender: FDA-Public Use
  Company Number: A0643673A

PATIENT
  Age: 77 Year
  Sex: Female

DRUGS (7)
  1. ADVAIR DISKUS 100/50 [Suspect]
     Indication: ASTHMA
     Dosage: 1PUFF PER DAY
     Route: 055
     Dates: start: 20010101
  2. SINGULAIR [Concomitant]
  3. ALBUTEROL [Concomitant]
  4. LUMIGAN [Concomitant]
  5. CARDIZEM [Concomitant]
  6. VALIUM [Concomitant]
  7. HYZAAR [Concomitant]

REACTIONS (4)
  - CARDIAC FLUTTER [None]
  - HEART RATE INCREASED [None]
  - INSOMNIA [None]
  - SOMNOLENCE [None]
